FAERS Safety Report 7232780-4 (Version None)
Quarter: 2011Q1

REPORT INFORMATION
  Report Type: 
  Country: None (occurrence: None)
  Receive Date: 20110119
  Receipt Date: 20110110
  Transmission Date: 20110831
  Serious: Yes (Hospitalization)
  Sender: FDA-Public Use
  Company Number: IT-B.I. PHARMACEUTICALS,INC./RIDGEFIELD-2010-IT-00303IT

PATIENT
  Sex: Female

DRUGS (5)
  1. MICARDIS HCT [Suspect]
     Indication: HYPERTENSION
     Dosage: 80/12.5 ONE POSOLOGIC UNIT/DAILY
     Route: 048
     Dates: start: 20090101, end: 20101003
  2. REMERON [Suspect]
     Route: 048
  3. TAREG [Suspect]
     Indication: HYPERTENSION
     Dosage: ONE POSOLOGIC UNIT/DAILY
     Route: 048
     Dates: start: 20090101, end: 20101003
  4. SERENASE [Suspect]
     Route: 048
  5. DILATREND [Concomitant]
     Dosage: 1 ANZ
     Route: 048

REACTIONS (2)
  - HYPONATRAEMIC SYNDROME [None]
  - ELECTROLYTE IMBALANCE [None]
